FAERS Safety Report 25748086 (Version 1)
Quarter: 2025Q3

REPORT INFORMATION
  Report Type: Spontaneous
  Country: TW (occurrence: TW)
  Receive Date: 20250901
  Receipt Date: 20250901
  Transmission Date: 20251021
  Serious: Yes (Hospitalization)
  Sender: BOEHRINGER INGELHEIM
  Company Number: TW-BoehringerIngelheim-2025-BI-092107

PATIENT
  Age: 59 Year
  Sex: Female
  Weight: 57.1 kg

DRUGS (1)
  1. GLYXAMBI [Suspect]
     Active Substance: EMPAGLIFLOZIN\LINAGLIPTIN
     Indication: Type 2 diabetes mellitus
     Dosage: 25/5 MG
     Dates: start: 20241017, end: 20250730

REACTIONS (9)
  - Euglycaemic diabetic ketoacidosis [Recovered/Resolved]
  - Hypertriglyceridaemia [Unknown]
  - Nausea [Recovered/Resolved]
  - Vomiting [Recovered/Resolved]
  - Cold sweat [Recovered/Resolved]
  - Palpitations [Recovered/Resolved]
  - Dry mouth [Recovered/Resolved]
  - Decreased appetite [Recovered/Resolved]
  - Dizziness [Recovered/Resolved]

NARRATIVE: CASE EVENT DATE: 20240101
